FAERS Safety Report 9667449 (Version 1)
Quarter: 2013Q4

REPORT INFORMATION
  Report Type: Spontaneous
  Country: US (occurrence: US)
  Receive Date: 20131101
  Receipt Date: 20131101
  Transmission Date: 20140711
  Serious: Yes (Other)
  Sender: FDA-Public Use
  Company Number: US-SAVIENT-2012S1000047

PATIENT
  Age: 46 Year
  Sex: Male

DRUGS (5)
  1. KRYSTEXXA INJECTION [Suspect]
     Indication: PRODUCT USED FOR UNKNOWN INDICATION
     Route: 042
     Dates: start: 20120509, end: 20120509
  2. KRYSTEXXA INJECTION [Suspect]
     Indication: PRODUCT USED FOR UNKNOWN INDICATION
     Route: 042
     Dates: start: 2012, end: 2012
  3. TYLENOL  /00020001/ [Concomitant]
     Indication: PREMEDICATION
     Route: 048
     Dates: start: 20120509, end: 20120509
  4. BENADRYL /00000402/ [Concomitant]
     Indication: PREMEDICATION
     Route: 048
     Dates: start: 20120509, end: 20120509
  5. DILTIAZEM [Concomitant]
     Indication: HYPERTENSION

REACTIONS (2)
  - Infusion related reaction [Recovered/Resolved]
  - Therapeutic response decreased [Unknown]
